FAERS Safety Report 13583967 (Version 1)
Quarter: 2017Q2

REPORT INFORMATION
  Report Type: Spontaneous
  Country: HR (occurrence: HR)
  Receive Date: 20170526
  Receipt Date: 20170526
  Transmission Date: 20170830
  Serious: Yes (Death, Life-Threatening, Hospitalization, Other)
  Sender: FDA-Public Use
  Company Number: HR-MACLEODS PHARMACEUTICALS US LTD-MAC2017005004

PATIENT

DRUGS (5)
  1. BISOPROLOL [Concomitant]
     Active Substance: BISOPROLOL
     Indication: PRODUCT USED FOR UNKNOWN INDICATION
     Dosage: 2.5 MG, UNK
     Route: 065
  2. AMLODIPINE BESYLATE. [Concomitant]
     Active Substance: AMLODIPINE BESYLATE
     Indication: PRODUCT USED FOR UNKNOWN INDICATION
     Dosage: 10 MG, UNK
     Route: 065
  3. METFORMIN HYDROCHLORIDE. [Suspect]
     Active Substance: METFORMIN HYDROCHLORIDE
     Indication: TYPE 2 DIABETES MELLITUS
     Dosage: 1 G, UNK
     Route: 065
  4. FUROSEMIDE. [Concomitant]
     Active Substance: FUROSEMIDE
     Indication: PRODUCT USED FOR UNKNOWN INDICATION
     Dosage: 0.5 G, UNK
     Route: 065
  5. 50% INSULIN ASPART; 50% PROTAMINE [Concomitant]
     Indication: TYPE 2 DIABETES MELLITUS
     Dosage: 26 IU + 16 IU + 20 IU, UNK
     Route: 065

REACTIONS (21)
  - Asthenia [Fatal]
  - Bradyarrhythmia [Fatal]
  - Dyspnoea [Fatal]
  - Pallor [Fatal]
  - Anuria [Fatal]
  - Leukocytosis [Fatal]
  - Anaemia [Fatal]
  - Metabolic acidosis [Fatal]
  - Lactic acidosis [Fatal]
  - Azotaemia [Fatal]
  - Hyperphosphataemia [Fatal]
  - Hypoglycaemia [Fatal]
  - Hypotension [Fatal]
  - Vomiting [Fatal]
  - Dry skin [Fatal]
  - Diarrhoea [Fatal]
  - Hypothermia [Fatal]
  - Skin turgor decreased [Fatal]
  - Somnolence [Fatal]
  - Renal failure [Fatal]
  - Atrial fibrillation [Fatal]
